FAERS Safety Report 20626732 (Version 3)
Quarter: 2022Q2

REPORT INFORMATION
  Report Type: Spontaneous
  Country: JP (occurrence: JP)
  Receive Date: 20220323
  Receipt Date: 20220517
  Transmission Date: 20220720
  Serious: Yes (Hospitalization)
  Sender: FDA-Public Use
  Company Number: JP-NOVARTISPH-NVSJ2022JP004804

PATIENT
  Age: 77 Year
  Sex: Male
  Weight: 61.9 kg

DRUGS (2)
  1. METFORMIN HYDROCHLORIDE\VILDAGLIPTIN [Suspect]
     Active Substance: METFORMIN HYDROCHLORIDE\VILDAGLIPTIN
     Indication: Type 2 diabetes mellitus
     Dosage: METFORMIN HYDROCHLORIDE 500MG/ VILDAGLIPTIN 50MG, QD
     Route: 048
     Dates: end: 20211209
  2. AZELNIDIPINE\OLMESARTAN MEDOXOMIL [Suspect]
     Active Substance: AZELNIDIPINE\OLMESARTAN MEDOXOMIL
     Indication: Hypertension
     Dosage: HD, 1 TABLET PER ADMINISTRATION, BID
     Route: 048
     Dates: end: 20211209

REACTIONS (2)
  - Acute kidney injury [Recovered/Resolved]
  - Rhabdomyolysis [Recovered/Resolved]

NARRATIVE: CASE EVENT DATE: 20211209
